FAERS Safety Report 5770891-0 (Version None)
Quarter: 2008Q2

REPORT INFORMATION
  Report Type: 
  Country: None (occurrence: None)
  Receive Date: 20080613
  Receipt Date: 20080516
  Transmission Date: 20081010
  Serious: No
  Sender: FDA-Public Use
  Company Number: US-ABBOTT-08P-163-0452485-00

PATIENT
  Sex: Male
  Weight: 91.254 kg

DRUGS (4)
  1. HUMIRA [Suspect]
     Indication: RHEUMATOID ARTHRITIS
     Route: 058
     Dates: start: 20080101
  2. CLONAZEPAM [Concomitant]
     Indication: ANXIETY
     Route: 048
  3. METHADONE HCL [Concomitant]
     Indication: PAIN
     Route: 048
  4. PREGABALIN [Concomitant]
     Indication: PAIN
     Route: 048

REACTIONS (5)
  - ARTHRALGIA [None]
  - INFLUENZA LIKE ILLNESS [None]
  - PAIN [None]
  - SENSORY DISTURBANCE [None]
  - SWELLING [None]
